FAERS Safety Report 8309814-9 (Version None)
Quarter: 2012Q2

REPORT INFORMATION
  Report Type: 
  Country: None (occurrence: None)
  Receive Date: 20120425
  Receipt Date: 20120419
  Transmission Date: 20120825
  Serious: Yes (Other)
  Sender: FDA-Public Use
  Company Number: PHHY2012BR033140

PATIENT
  Age: 6 Year
  Sex: Male

DRUGS (5)
  1. RISPERIDONE [Concomitant]
     Dosage: 2 DF, QD
     Route: 048
  2. RITALIN [Suspect]
     Dosage: 1.5 DF, QD
     Route: 048
  3. RITALIN [Suspect]
     Indication: PSYCHOMOTOR HYPERACTIVITY
     Dosage: 1 DF, QD
     Route: 048
  4. DEPAKOTE [Concomitant]
     Dosage: 2 DF, QD
     Route: 048
  5. RITALIN [Suspect]
     Dosage: 0.5 DF, BID
     Route: 048

REACTIONS (3)
  - BINGE EATING [None]
  - ABNORMAL BEHAVIOUR [None]
  - WRONG TECHNIQUE IN DRUG USAGE PROCESS [None]
